FAERS Safety Report 25895247 (Version 1)
Quarter: 2025Q4

REPORT INFORMATION
  Report Type: Spontaneous
  Country: US (occurrence: None)
  Receive Date: 20251007
  Receipt Date: 20251007
  Transmission Date: 20260118
  Serious: Yes (Other)
  Sender: FDA-CTU
  Company Number: None

PATIENT
  Age: 65 Year
  Sex: Male

DRUGS (1)
  1. STEQEYMA [Suspect]
     Active Substance: USTEKINUMAB-STBA
     Indication: Crohn^s disease
     Dosage: 90MG EVERY 8 WEEKS?

REACTIONS (7)
  - Peripheral swelling [None]
  - Inflammation [None]
  - Discomfort [None]
  - Bladder disorder [None]
  - Diarrhoea [None]
  - Diarrhoea [None]
  - Micturition urgency [None]
